FAERS Safety Report 11089403 (Version 1)
Quarter: 2015Q2

REPORT INFORMATION
  Report Type: Spontaneous
  Country: US (occurrence: US)
  Receive Date: 20150505
  Receipt Date: 20150505
  Transmission Date: 20150821
  Serious: No
  Sender: FDA-Public Use
  Company Number: US-ASTRAZENECA-2015SE39444

PATIENT
  Age: 766 Month
  Sex: Female
  Weight: 71.7 kg

DRUGS (13)
  1. BUTATITOL [Concomitant]
     Indication: INFLAMMATION
     Route: 065
     Dates: start: 1988
  2. SPIRIVA [Concomitant]
     Active Substance: TIOTROPIUM BROMIDE MONOHYDRATE
     Indication: EMPHYSEMA
     Dosage: DAILY
     Route: 055
  3. BUTATITOL [Concomitant]
     Indication: PAIN
     Route: 065
     Dates: start: 1988
  4. SIMVASTATIN. [Concomitant]
     Active Substance: SIMVASTATIN
     Indication: BLOOD CHOLESTEROL ABNORMAL
     Route: 065
  5. PAXIL [Concomitant]
     Active Substance: PAROXETINE HYDROCHLORIDE
     Indication: ANXIETY
     Route: 065
  6. SYMBICORT [Suspect]
     Active Substance: BUDESONIDE\FORMOTEROL FUMARATE DIHYDRATE
     Indication: EMPHYSEMA
     Dosage: 1 PUFF; TWO TIMES A DAY
     Route: 055
  7. LOSTATIN [Concomitant]
     Indication: BLOOD PRESSURE ABNORMAL
     Route: 065
  8. PROAIR HFA [Concomitant]
     Active Substance: ALBUTEROL SULFATE
     Indication: BRONCHITIS CHRONIC
     Dosage: AS REQUIRED
     Route: 055
  9. PROAIR HFA [Concomitant]
     Active Substance: ALBUTEROL SULFATE
     Indication: EMPHYSEMA
     Dosage: AS REQUIRED
     Route: 055
  10. SYMBICORT [Suspect]
     Active Substance: BUDESONIDE\FORMOTEROL FUMARATE DIHYDRATE
     Indication: BRONCHITIS CHRONIC
     Dosage: 1 PUFF; TWO TIMES A DAY
     Route: 055
  11. NEXIUM [Suspect]
     Active Substance: ESOMEPRAZOLE MAGNESIUM
     Dosage: AS REQUIRED
     Route: 048
  12. SPIRIVA [Concomitant]
     Active Substance: TIOTROPIUM BROMIDE MONOHYDRATE
     Indication: BRONCHITIS CHRONIC
     Dosage: DAILY
     Route: 055
  13. PAXIL [Concomitant]
     Active Substance: PAROXETINE HYDROCHLORIDE
     Indication: POST-TRAUMATIC STRESS DISORDER
     Route: 065

REACTIONS (3)
  - Off label use [Unknown]
  - Drug dose omission [Not Recovered/Not Resolved]
  - Dyspnoea [Not Recovered/Not Resolved]

NARRATIVE: CASE EVENT DATE: 201504
